FAERS Safety Report 8451795-1 (Version None)
Quarter: 2012Q2

REPORT INFORMATION
  Report Type: 
  Country: None (occurrence: None)
  Receive Date: 20120620
  Receipt Date: 20120319
  Transmission Date: 20120825
  Serious: No
  Sender: FDA-Public Use
  Company Number: US-VERTEX PHARMACEUTICALS INC.-AE-2012-003895

PATIENT
  Sex: Male
  Weight: 81.72 kg

DRUGS (4)
  1. LORTAB [Concomitant]
     Indication: PAIN
     Route: 048
  2. PEG-INTRON [Concomitant]
     Indication: HEPATITIS C
     Route: 058
     Dates: start: 20120203
  3. RIBAVIRIN [Concomitant]
     Indication: HEPATITIS C
     Route: 048
     Dates: start: 20120203
  4. INCIVEK [Suspect]
     Indication: HEPATITIS C
     Route: 048
     Dates: start: 20120203

REACTIONS (6)
  - DYSPNOEA [None]
  - COUGH [None]
  - DRY SKIN [None]
  - EPISTAXIS [None]
  - DYSPHAGIA [None]
  - DRY MOUTH [None]
